FAERS Safety Report 15648706 (Version 6)
Quarter: 2019Q2

REPORT INFORMATION
  Report Type: Spontaneous
  Country: JP (occurrence: JP)
  Receive Date: 20181122
  Receipt Date: 20190401
  Transmission Date: 20190711
  Serious: Yes (Death, Hospitalization, Other)
  Sender: FDA-Public Use
  Company Number: JP-ASTRAZENECA-2018SF37102

PATIENT
  Age: 76 Year
  Sex: Male
  Weight: 58 kg

DRUGS (4)
  1. IMFINZI [Suspect]
     Active Substance: DURVALUMAB
     Indication: NON-SMALL CELL LUNG CANCER
     Route: 041
     Dates: start: 201901, end: 20190214
  2. GENTAMICIN. [Concomitant]
     Active Substance: GENTAMICIN
  3. FAMVIR [Concomitant]
     Active Substance: FAMCICLOVIR
  4. IMFINZI [Suspect]
     Active Substance: DURVALUMAB
     Indication: NON-SMALL CELL LUNG CANCER
     Route: 041
     Dates: start: 20180929, end: 20181108

REACTIONS (4)
  - Herpes zoster [Recovering/Resolving]
  - Arterial haemorrhage [Fatal]
  - Malignant neoplasm progression [Unknown]
  - Radiation pneumonitis [Recovering/Resolving]

NARRATIVE: CASE EVENT DATE: 20181002
